FAERS Safety Report 8012927-2 (Version None)
Quarter: 2011Q4

REPORT INFORMATION
  Report Type: 
  Country: None (occurrence: None)
  Receive Date: 20111229
  Receipt Date: 20111222
  Transmission Date: 20120403
  Serious: Yes (Hospitalization)
  Sender: FDA-Public Use
  Company Number: CN-ASTELLAS-2011JP009199

PATIENT
  Sex: Female

DRUGS (3)
  1. FUZHENGQIANGJIN [Concomitant]
     Dosage: 15 DF, UNKNOWN/D
     Route: 048
     Dates: start: 20110914
  2. TACROLIMUS [Suspect]
     Indication: MYASTHENIA GRAVIS
     Dosage: 3 MG, UNKNOWN/D
     Route: 048
     Dates: start: 20110914, end: 20111206
  3. PYRIDOSTIGMINE BROMIDE [Concomitant]
     Dosage: 240 MG, UNKNOWN/D
     Route: 065
     Dates: start: 20110914

REACTIONS (1)
  - MYASTHENIA GRAVIS [None]
